FAERS Safety Report 17154418 (Version 5)
Quarter: 2020Q1

REPORT INFORMATION
  Report Type: Report from Study
  Country: US (occurrence: US)
  Receive Date: 20191213
  Receipt Date: 20200328
  Transmission Date: 20200409
  Serious: Yes (Other)
  Sender: FDA-Public Use
  Company Number: NVSC2019US027271

PATIENT
  Age: 72 Year
  Sex: Male

DRUGS (3)
  1. BEOVU [Suspect]
     Active Substance: BROLUCIZUMAB-DBLL
     Dosage: UNK
     Route: 047
  2. BEOVU [Suspect]
     Active Substance: BROLUCIZUMAB-DBLL
     Route: 047
  3. BEOVU [Suspect]
     Active Substance: BROLUCIZUMAB-DBLL
     Indication: NEOVASCULAR AGE-RELATED MACULAR DEGENERATION
     Dosage: UNK
     Route: 047
     Dates: start: 20191029

REACTIONS (8)
  - Metamorphopsia [Unknown]
  - Foreign body in eye [Not Recovered/Not Resolved]
  - Lacrimation increased [Recovered/Resolved]
  - Eye pain [Recovered/Resolved]
  - Vitreous floaters [Unknown]
  - Eye haemorrhage [Unknown]
  - Photophobia [Unknown]
  - Visual impairment [Unknown]

NARRATIVE: CASE EVENT DATE: 20200218
